FAERS Safety Report 16482971 (Version 1)
Quarter: 2019Q2

REPORT INFORMATION
  Report Type: Spontaneous
  Country: SE (occurrence: SE)
  Receive Date: 20190627
  Receipt Date: 20190627
  Transmission Date: 20190711
  Serious: Yes (Hospitalization)
  Sender: FDA-Public Use
  Company Number: SE-ASTRAZENECA-2019SE89973

PATIENT
  Age: 28 Year
  Sex: Female

DRUGS (7)
  1. LERGIGAN [PROMETHAZINE HYDROCHLORIDE] [Suspect]
     Active Substance: PROMETHAZINE HYDROCHLORIDE
     Dosage: 200.0MG UNKNOWN
     Route: 048
     Dates: start: 20190211, end: 20190211
  2. FOLIC ACID. [Suspect]
     Active Substance: FOLIC ACID
     Route: 048
     Dates: start: 20190211, end: 20190211
  3. MELATONIN [Suspect]
     Active Substance: MELATONIN
     Dosage: 20.0MG UNKNOWN
     Route: 048
     Dates: start: 20190211, end: 20190211
  4. ZOPICLONE [Suspect]
     Active Substance: ZOPICLONE
     Route: 048
     Dates: start: 20190211, end: 20190211
  5. ALIMEMAZINE [Suspect]
     Active Substance: TRIMEPRAZINE
     Dosage: 240.0MG UNKNOWN
     Route: 048
     Dates: start: 20190211, end: 20190211
  6. LAMOTRIGINE. [Suspect]
     Active Substance: LAMOTRIGINE
     Dosage: 550.0MG UNKNOWN
     Route: 048
     Dates: start: 20190211, end: 20190211
  7. OMEPRAZOLE. [Suspect]
     Active Substance: OMEPRAZOLE
     Route: 048
     Dates: start: 20190211, end: 20190211

REACTIONS (3)
  - Intentional overdose [Unknown]
  - Intentional self-injury [Unknown]
  - Somnolence [Unknown]

NARRATIVE: CASE EVENT DATE: 20190211
